FAERS Safety Report 16154598 (Version 6)
Quarter: 2019Q3

REPORT INFORMATION
  Report Type: Report from Study
  Country: US (occurrence: US)
  Receive Date: 20190403
  Receipt Date: 20190723
  Transmission Date: 20191004
  Serious: Yes (Other)
  Sender: FDA-Public Use
  Company Number: US-PFIZER INC-2019058516

PATIENT
  Age: 67 Year
  Sex: Female

DRUGS (3)
  1. IBRANCE [Suspect]
     Active Substance: PALBOCICLIB
     Indication: BREAST CANCER FEMALE
     Dosage: 125 MG, CYCLIC (DAILY FOR 21 DAYS ON AND 7 DAYS OFF)
     Route: 048
     Dates: start: 20190130, end: 2019
  2. XGEVA [Concomitant]
     Active Substance: DENOSUMAB
     Dosage: UNK
  3. IBRANCE [Suspect]
     Active Substance: PALBOCICLIB
     Dosage: 125 MG, CYCLIC (125MG DAILY 21 DAYS ON AND 7 DAYS OFF)
     Route: 048
     Dates: start: 20190601

REACTIONS (15)
  - Intentional dose omission [Unknown]
  - Neoplasm progression [Recovering/Resolving]
  - Pain in extremity [Unknown]
  - Burning sensation [Unknown]
  - Feeling abnormal [Unknown]
  - Cheilitis [Recovered/Resolved]
  - Chills [Unknown]
  - Lymph node pain [Not Recovered/Not Resolved]
  - Bone marrow failure [Recovering/Resolving]
  - Rash pruritic [Unknown]
  - Weight increased [Unknown]
  - Condition aggravated [Not Recovered/Not Resolved]
  - Fatigue [Not Recovered/Not Resolved]
  - Pain [Not Recovered/Not Resolved]
  - Dry mouth [Not Recovered/Not Resolved]

NARRATIVE: CASE EVENT DATE: 2019
